FAERS Safety Report 23931685 (Version 1)
Quarter: 2024Q2

REPORT INFORMATION
  Report Type: Spontaneous
  Country: US (occurrence: US)
  Receive Date: 20240603
  Receipt Date: 20240603
  Transmission Date: 20240716
  Serious: Yes (Hospitalization)
  Sender: FDA-Public Use
  Company Number: US-ALEMBIC PHARMACUETICALS LIMITED-2024SCAL000721

PATIENT

DRUGS (1)
  1. BUPROPION HYDROCHLORIDE [Suspect]
     Active Substance: BUPROPION HYDROCHLORIDE
     Indication: Product used for unknown indication
     Dosage: UNK
     Route: 048

REACTIONS (11)
  - Intentional product misuse [Unknown]
  - Wrong technique in product usage process [Unknown]
  - Anxiety [Unknown]
  - Irritability [Unknown]
  - Psychomotor hyperactivity [Unknown]
  - Panic attack [Unknown]
  - Insomnia [Unknown]
  - Tremor [Unknown]
  - Hyperhidrosis [Unknown]
  - Sinus tachycardia [Recovered/Resolved]
  - Product prescribing issue [Unknown]
